FAERS Safety Report 17663697 (Version 7)
Quarter: 2023Q4

REPORT INFORMATION
  Report Type: Spontaneous
  Country: US (occurrence: US)
  Receive Date: 20200414
  Receipt Date: 20231023
  Transmission Date: 20240109
  Serious: Yes (Other)
  Sender: FDA-Public Use
  Company Number: US-ALEXION-131061

PATIENT
  Sex: Female

DRUGS (2)
  1. SOLIRIS [Suspect]
     Active Substance: ECULIZUMAB
     Dosage: UNK
     Route: 065
  2. SOLIRIS [Suspect]
     Active Substance: ECULIZUMAB
     Indication: Neuromyelitis optica spectrum disorder
     Route: 065

REACTIONS (6)
  - Neutropenia [Unknown]
  - White blood cell count decreased [Recovering/Resolving]
  - Lymphocyte morphology abnormal [Unknown]
  - Neutrophil count decreased [Unknown]
  - Lymphopenia [Unknown]
  - Dizziness [Unknown]
